FAERS Safety Report 9523948 (Version 1)
Quarter: 2013Q1

REPORT INFORMATION
  Report Type: Spontaneous
  Country: US (occurrence: None)
  Receive Date: 20130313
  Receipt Date: 20130313
  Transmission Date: 20140127
  Serious: No
  Sender: FDA-Public Use
  Company Number: 1000029750

PATIENT
  Age: 34 Year
  Sex: Female

DRUGS (6)
  1. SAVELLA [Suspect]
     Indication: FIBROMYALGIA
     Dosage: 12.5 (12.5 MG, 1 IN 1 D), ORAL
     Route: 048
     Dates: start: 2012, end: 2012
  2. SAVELLA [Suspect]
     Indication: FIBROMYALGIA
     Dosage: 200 G (100 MG, 2 IN 1 D), ORAL
     Route: 048
     Dates: start: 2012, end: 2012
  3. ZOMIG (ZOLMITRIPTAN) (ZOLMITRIPTAN) [Concomitant]
  4. MORPHINE (MORPHINE) (MORPHINE) [Concomitant]
  5. SYNTHROID (LEVOTHYROXINE SODIUM) (LEVOTHYROXINE SODIUM) [Concomitant]
  6. IBUPROFEN (IBUPROFEN) (IBUPROFEN) [Concomitant]

REACTIONS (2)
  - Headache [None]
  - Nausea [None]
